FAERS Safety Report 25949590 (Version 1)
Quarter: 2025Q4

REPORT INFORMATION
  Report Type: Report from Study
  Country: EU (occurrence: EU)
  Receive Date: 20251022
  Receipt Date: 20251022
  Transmission Date: 20260117
  Serious: Yes (Hospitalization, Other)
  Sender: PFIZER
  Company Number: EU-EMA-DD-20251014-7482715-062257

PATIENT
  Age: 72 Year
  Sex: Female
  Weight: 61 kg

DRUGS (32)
  1. BEVACIZUMAB [Suspect]
     Active Substance: BEVACIZUMAB
     Indication: Colorectal cancer metastatic
     Dosage: 457.5 MG, EVERY 3 WEEKS
     Route: 042
     Dates: start: 20150824
  2. BEVACIZUMAB [Suspect]
     Active Substance: BEVACIZUMAB
     Dosage: 457.5 MG, EVERY 3 WEEKS
     Route: 042
     Dates: start: 20151216
  3. AVASTIN [Suspect]
     Active Substance: BEVACIZUMAB
     Indication: Colorectal cancer metastatic
     Dosage: DAILY DOSE: 457.5 MG MILLGRAM(S) EVERY 3 WEEKS
     Route: 042
     Dates: start: 20150824
  4. AVASTIN [Suspect]
     Active Substance: BEVACIZUMAB
     Dosage: DAILY DOSE: 457.5 MG MILLGRAM(S) EVERY 3 WEEKS
     Route: 042
     Dates: start: 20151216
  5. XELODA [Suspect]
     Active Substance: CAPECITABINE
     Indication: Colorectal cancer
     Dosage: DAILY DOSE: 3000 MG MILLGRAM(S) EVERY 3 WEEKS
     Route: 048
     Dates: start: 20150803, end: 20150816
  6. XELODA [Suspect]
     Active Substance: CAPECITABINE
     Dosage: DAILY DOSE: 2500 MG MILLGRAM(S) EVERY 3 WEEKS
     Route: 048
     Dates: start: 20151216, end: 20151229
  7. ATROPINE [Concomitant]
     Active Substance: ATROPINE
     Indication: Cholinergic syndrome
     Dosage: 0.25 MG
     Route: 058
     Dates: start: 20150803, end: 20150914
  8. ELIQUIS [Concomitant]
     Active Substance: APIXABAN
     Indication: Embolism
     Dosage: DAILY DOSE: 5 MG MILLGRAM(S) EVERY DAYS
     Route: 048
     Dates: start: 20151015, end: 20151104
  9. DEXAMETHASONE [Concomitant]
     Active Substance: DEXAMETHASONE
     Indication: Vomiting
     Dosage: 10 MG
     Route: 042
     Dates: start: 20150803, end: 20150914
  10. HYDROCHLOROTHIAZIDE [Concomitant]
     Active Substance: HYDROCHLOROTHIAZIDE
     Indication: Hypertension
     Dosage: DAILY DOSE: 12.5 MG MILLGRAM(S) EVERY DAYS
     Route: 048
     Dates: start: 2015
  11. IRINOTECAN [Concomitant]
     Active Substance: IRINOTECAN
     Indication: Colorectal cancer
     Dosage: DAILY DOSE: 332 MG MILLGRAM(S) EVERY 3 WEEKS
     Route: 042
     Dates: start: 20150803
  12. IRINOTECAN [Concomitant]
     Active Substance: IRINOTECAN
     Dosage: DAILY DOSE: 249 MG MILLGRAM(S) EVERY 3 WEEKS
     Route: 042
     Dates: start: 20150914, end: 20150914
  13. IRINOTECAN [Concomitant]
     Active Substance: IRINOTECAN
     Dosage: DAILY DOSE: 0 MG MILLGRAM(S) EVERY 3 WEEKS
     Route: 042
     Dates: start: 20151015, end: 20151015
  14. GRANISETRON HYDROCHLORIDE [Concomitant]
     Active Substance: GRANISETRON HYDROCHLORIDE
     Indication: Nausea
     Dosage: 1 DF
     Route: 042
     Dates: start: 20150803, end: 20150914
  15. LEVOTHYROXINE SODIUM [Concomitant]
     Active Substance: LEVOTHYROXINE SODIUM
     Indication: Hypothyroidism
     Dosage: DAILY DOSE: 125 ?G MICROGRAM(S) EVERY DAYS
     Route: 048
     Dates: start: 20100701
  16. LOPERAMIDE HYDROCHLORIDE [Concomitant]
     Active Substance: LOPERAMIDE HYDROCHLORIDE
     Indication: Diarrhoea
     Dosage: 4 DF, 1X/DAY (AS REQUIRED)
     Route: 048
     Dates: start: 20150914, end: 20151012
  17. METAMIZOLE [Concomitant]
     Active Substance: METAMIZOLE
     Indication: Abdominal pain
     Dosage: 30 DROP
     Route: 048
     Dates: start: 20150914, end: 20151012
  18. METAMIZOLE [Concomitant]
     Active Substance: METAMIZOLE
     Dosage: 1 G
     Route: 048
     Dates: start: 20160205
  19. NOVALGIN (METAMIZOLE SODIUM) [Concomitant]
     Active Substance: METAMIZOLE SODIUM
     Indication: Flank pain
     Dosage: 20 DROP
     Route: 048
     Dates: start: 20160606
  20. ONDANSETRON [Concomitant]
     Active Substance: ONDANSETRON
     Indication: Vomiting
     Dosage: 8 MG
     Route: 048
     Dates: start: 20160122
  21. OPIUM [Concomitant]
     Active Substance: OPIUM
     Indication: Diarrhoea
     Dosage: 2 DROP
     Route: 048
     Dates: start: 20150923, end: 20151012
  22. PANTOPRAZOLE [PANTOPRAZOLE SODIUM] [Concomitant]
     Indication: Abdominal pain
     Dosage: DAILY DOSE: 80 MG MILLGRAM(S) EVERY DAYS
     Route: 048
     Dates: start: 20150911, end: 20151012
  23. PANTOPRAZOLE [PANTOPRAZOLE SODIUM] [Concomitant]
     Indication: Dyspepsia
     Dosage: DAILY DOSE: 80 MG MILLGRAM(S) EVERY DAYS
     Route: 048
     Dates: start: 20160207
  24. PANTOPRAZOLE [PANTOPRAZOLE SODIUM] [Concomitant]
     Dosage: DAILY DOSE: 40 MG MILLGRAM(S) EVERY DAYS
     Route: 048
     Dates: start: 20160208, end: 20160209
  25. RAMIPRIL [Concomitant]
     Active Substance: RAMIPRIL
     Indication: Hypertension
     Dosage: DAILY DOSE: 5 MG MILLGRAM(S) EVERY DAYS
     Route: 048
     Dates: start: 20100701
  26. SPIRONOLACTONE [Concomitant]
     Active Substance: SPIRONOLACTONE
     Indication: Oedema peripheral
     Dosage: 25 MG
     Route: 048
     Dates: start: 20150728, end: 20150824
  27. SPIRONOLACTONE [Concomitant]
     Active Substance: SPIRONOLACTONE
     Indication: Oedema
     Dosage: 25 MG
     Route: 048
     Dates: start: 20151012, end: 20151104
  28. TORSEMIDE [Concomitant]
     Active Substance: TORSEMIDE
     Indication: Oedema peripheral
     Dosage: 10 MG
     Route: 048
     Dates: start: 20150728, end: 20150824
  29. TORSEMIDE [Concomitant]
     Active Substance: TORSEMIDE
     Dosage: 10 MG
     Route: 048
     Dates: start: 20151007, end: 20151125
  30. ALIZAPRIDE HYDROCHLORIDE [Concomitant]
     Active Substance: ALIZAPRIDE HYDROCHLORIDE
     Indication: Vomiting
     Dosage: 1 DF
     Route: 048
     Dates: start: 20150804
  31. CHOLECALCIFEROL [Concomitant]
     Active Substance: CHOLECALCIFEROL
     Indication: Vitamin D deficiency
     Dosage: DAILY DOSE: 1000 IU INTERNATIONAL UNIT(S) EVERY DAYS
     Route: 048
     Dates: start: 20151015, end: 20160128
  32. DIMENHYDRINATE [Concomitant]
     Active Substance: DIMENHYDRINATE
     Indication: Nausea
     Dosage: 1 DF
     Route: 054
     Dates: start: 20150804

REACTIONS (6)
  - Liver abscess [Recovered/Resolved]
  - Hypertension [Recovered/Resolved]
  - Embolism [Unknown]
  - Hypersensitivity [Recovered/Resolved]
  - Blood alkaline phosphatase increased [Recovered/Resolved]
  - Gamma-glutamyltransferase increased [Recovered/Resolved]

NARRATIVE: CASE EVENT DATE: 20151126
